FAERS Safety Report 8557888-2 (Version None)
Quarter: 2012Q3

REPORT INFORMATION
  Report Type: 
  Country: None (occurrence: None)
  Receive Date: 20120801
  Receipt Date: 20120725
  Transmission Date: 20120928
  Serious: Yes (Congenital Anomaly)
  Sender: FDA-Public Use
  Company Number: DE-UCBSA-062692

PATIENT
  Sex: Male

DRUGS (1)
  1. KEPPRA [Suspect]
     Indication: EPILEPSY
     Route: 064

REACTIONS (4)
  - PREMATURE BABY [None]
  - DANDY-WALKER SYNDROME [None]
  - FOETAL EXPOSURE DURING PREGNANCY [None]
  - CONGENITAL CENTRAL NERVOUS SYSTEM ANOMALY [None]
